FAERS Safety Report 21506233 (Version 1)
Quarter: 2022Q4

REPORT INFORMATION
  Report Type: Spontaneous
  Country: DE (occurrence: DE)
  Receive Date: 20221026
  Receipt Date: 20221026
  Transmission Date: 20230113
  Serious: Yes (Other)
  Sender: FDA-Public Use
  Company Number: DE-ALKEM LABORATORIES LIMITED-DE-ALKEM-2022-11215

PATIENT
  Age: 5 Week
  Sex: Male

DRUGS (7)
  1. SIROLIMUS [Suspect]
     Active Substance: SIROLIMUS
     Indication: Angiosarcoma
     Dosage: 0.8 MILLIGRAM/SQ. METER, BSA BID (TARGET LEVEL 10-15 NG/ML)
     Route: 065
  2. SIROLIMUS [Suspect]
     Active Substance: SIROLIMUS
     Dosage: UNK, (GRADUALLY REDUCED TO A SERUM LEVEL OF 4 NG/ML)4 NG/ML
     Route: 065
  3. LEVOTHYROXINE [Concomitant]
     Active Substance: LEVOTHYROXINE
     Indication: Hypothyroidism
     Dosage: 50 MICROGRAM, QD(PER DAY)
     Route: 048
  4. LEVOTHYROXINE [Concomitant]
     Active Substance: LEVOTHYROXINE
     Dosage: 125 MICROGRAM, QD(PER DAY)
     Route: 065
  5. LIOTHYRONINE [Concomitant]
     Active Substance: LIOTHYRONINE
     Indication: Hypothyroidism
     Dosage: 10 MICROGRAM, TID
     Route: 048
  6. PROPRANOLOL [Concomitant]
     Active Substance: PROPRANOLOL HYDROCHLORIDE
     Indication: Haemangioma of skin
     Dosage: 2.5 MILLIGRAM/KILOGRAM, QD(PER DAY)
     Route: 048
  7. PROPRANOLOL [Concomitant]
     Active Substance: PROPRANOLOL HYDROCHLORIDE
     Dosage: 5 MILLIGRAM/KILOGRAM, QD(PER DAY)
     Route: 065

REACTIONS (8)
  - Neutropenia [Unknown]
  - Renal impairment [Unknown]
  - Aphthous ulcer [Unknown]
  - Gastritis [Unknown]
  - Fatigue [Unknown]
  - Hyperlipidaemia [Unknown]
  - Hypoglycaemia [Unknown]
  - Hepatic function abnormal [Unknown]
